FAERS Safety Report 21430211 (Version 1)
Quarter: 2022Q4

REPORT INFORMATION
  Report Type: Spontaneous
  Country: EE (occurrence: EE)
  Receive Date: 20221009
  Receipt Date: 20221009
  Transmission Date: 20230112
  Serious: Yes (Hospitalization)
  Sender: FDA-Public Use
  Company Number: None

PATIENT
  Age: 54 Year
  Sex: Female
  Weight: 62 kg

DRUGS (13)
  1. VALACYCLOVIR HYDROCHLORIDE [Suspect]
     Active Substance: VALACYCLOVIR HYDROCHLORIDE
     Indication: Herpes zoster
     Dosage: THIN POLYMER COATED TABLETS , FORM STRENGTH : 500 MG  , UNIT DOSE : 500 MG   , FREQUENCY TIME :1 DAY
     Dates: start: 20220907, end: 20220909
  2. MEDROL [Concomitant]
     Active Substance: METHYLPREDNISOLONE
     Indication: Product used for unknown indication
     Dosage: FORM STRENGTH : 4 MG , UNIT DOSE : 4 MG , FREQUENCY TIME : 1 DAY
  3. OLIMESTRA [Concomitant]
     Indication: Product used for unknown indication
     Dosage: THIN POLYMER COATED TABLETS , FORM STRENGTH : 40 MG  ,  UNIT DOSE : 40 MG  , FREQUENCY TIME : 1 DAY
  4. ATSIMUTIN [Concomitant]
     Indication: Product used for unknown indication
     Dosage: THIN POLYMER COATED TABLETS , FORM STRENGTH : 50 MG  ,  UNIT DOSE : 50 MG  , FREQUENCY TIME : 1 DAY
  5. DOXAZOSIN MESYLATE [Concomitant]
     Active Substance: DOXAZOSIN MESYLATE
     Indication: Product used for unknown indication
     Dosage: FORM STRENGTH : 4 MG ,  UNIT DOSE : 4 MG  , FREQUENCY TIME : 12 HOUR
  6. Hjertemagnyl [Concomitant]
     Indication: Product used for unknown indication
     Dosage: FOR ACTIVE INGREDIENT ACETYLSALICYLIC ACID THE STRENGTH IS 75 MILLIGRAM  ,FOR ACTIVE INGREDIENT MAGN
  7. LASIX [Concomitant]
     Active Substance: FUROSEMIDE
     Indication: Product used for unknown indication
     Dosage: EXTENDED RELEASE CAPSULES , FORM STRENGTH : 60 MG  ,  UNIT DOSE : 60 MG
  8. ROCALTROL [Concomitant]
     Active Substance: CALCITRIOL
     Indication: Product used for unknown indication
     Dosage: FORM STRENGTH : 0.25 MICROGRAM ,  UNIT DOSE : 0.25 MICROGRAM  , FREQUENCY TIME : 1 DAY
  9. OMEPRAZOLE [Concomitant]
     Active Substance: OMEPRAZOLE
     Indication: Product used for unknown indication
     Dosage: UNIT DOSE :20 MG   , FREQUENCY TIME :  1 DAY
  10. SORBISTERIT [Concomitant]
     Indication: Product used for unknown indication
  11. TRANDATE [Concomitant]
     Active Substance: LABETALOL HYDROCHLORIDE
     Indication: Product used for unknown indication
     Dosage: THIN POLYMER COATED TABLETS , FORM STRENGTH :100 MG   ,  UNIT DOSE : 100 MG  , FREQUENCY TIME : 8 HO
  12. FOLIC ACID [Concomitant]
     Active Substance: FOLIC ACID
     Indication: Product used for unknown indication
     Dosage: FORM STRENGTH : 5 MG  ,  UNIT DOSE : 5 MG  , FREQUENCY TIME : 1 WEEKS
  13. MOXONIDINE [Concomitant]
     Active Substance: MOXONIDINE
     Indication: Product used for unknown indication
     Dosage: UNIT DOSE : 0.4 MG  , FREQUENCY TIME : 12 HOUR

REACTIONS (5)
  - Burning sensation [Recovered/Resolved]
  - Confusional state [Recovered/Resolved]
  - Hallucination, visual [Recovered/Resolved]
  - Malaise [Recovered/Resolved]
  - Derealisation [Recovered/Resolved]

NARRATIVE: CASE EVENT DATE: 20220908
